FAERS Safety Report 19933680 (Version 3)
Quarter: 2025Q1

REPORT INFORMATION
  Report Type: Other
  Country: DE (occurrence: DE)
  Receive Date: 20211008
  Receipt Date: 20250314
  Transmission Date: 20250409
  Serious: Yes (Other)
  Sender: BIOCON
  Company Number: DE-AMGEN-DEUSP2021090221

PATIENT

DRUGS (5)
  1. TRASTUZUMAB [Suspect]
     Active Substance: TRASTUZUMAB
     Indication: HER2 positive breast cancer
     Dosage: 6 MICROGRAM/KILOGRAM, Q3WK, STARTING WITH A LOADING DOSE OF 8 MG/KG FOLLOWED BY 6 MG/KG EVERY 3 WEEK
     Route: 065
  2. TRASTUZUMAB [Suspect]
     Active Substance: TRASTUZUMAB
     Route: 065
  3. TRASTUZUMAB [Suspect]
     Active Substance: TRASTUZUMAB
     Route: 065
  4. PACLITAXEL [Suspect]
     Active Substance: PACLITAXEL
     Indication: HER2 positive breast cancer
     Route: 065
  5. PACLITAXEL [Suspect]
     Active Substance: PACLITAXEL
     Route: 065

REACTIONS (4)
  - Ophthalmic herpes simplex [Unknown]
  - Keratitis [Unknown]
  - Immune-mediated adverse reaction [Unknown]
  - Neuropathy peripheral [Unknown]
